FAERS Safety Report 7658880-2 (Version None)
Quarter: 2011Q3

REPORT INFORMATION
  Report Type: 
  Country: None (occurrence: None)
  Receive Date: 20110804
  Receipt Date: 20110804
  Transmission Date: 20111222
  Serious: Yes (Hospitalization)
  Sender: FDA-Public Use
  Company Number: None

PATIENT
  Sex: Female
  Weight: 47.1741 kg

DRUGS (2)
  1. LIDODERM [Suspect]
     Indication: BACK PAIN
     Dosage: 1 PATCH 1 X A DAY AT NITE FOR 12 HOURS
     Dates: start: 20110629, end: 20110630
  2. LIDODERM [Suspect]
     Indication: BACK PAIN
     Dosage: 1 PATCH 1 X A DAY AT NITE FOR 12 HOURS
     Dates: start: 20110701

REACTIONS (4)
  - BLOOD PRESSURE INCREASED [None]
  - HEADACHE [None]
  - HALLUCINATION [None]
  - LETHARGY [None]
